FAERS Safety Report 15774094 (Version 1)
Quarter: 2018Q4

REPORT INFORMATION
  Report Type: Spontaneous
  Country: US (occurrence: US)
  Receive Date: 20181229
  Receipt Date: 20181229
  Transmission Date: 20190205
  Serious: Yes (Other)
  Sender: FDA-Public Use
  Company Number: US-JNJFOC-20181218418

PATIENT
  Age: 58 Year
  Sex: Female

DRUGS (5)
  1. VICTOZA [Concomitant]
     Active Substance: LIRAGLUTIDE
     Route: 065
  2. ERTUGLIFLOZIN [Concomitant]
     Active Substance: ERTUGLIFLOZIN
     Route: 065
  3. AFREZZA [Concomitant]
     Active Substance: INSULIN HUMAN
     Route: 065
  4. INVOKANA [Suspect]
     Active Substance: CANAGLIFLOZIN
     Indication: PRODUCT USED FOR UNKNOWN INDICATION
     Route: 048
  5. LANTUS [Concomitant]
     Active Substance: INSULIN GLARGINE
     Route: 065

REACTIONS (1)
  - Anaphylactic reaction [Unknown]
